FAERS Safety Report 6669071-6 (Version None)
Quarter: 2010Q2

REPORT INFORMATION
  Report Type: 
  Country: None (occurrence: None)
  Receive Date: 20100402
  Receipt Date: 20100321
  Transmission Date: 20101027
  Serious: Yes (Other)
  Sender: FDA-Public Use
  Company Number: HK-DEXPHARM-20100375

PATIENT
  Age: 58 Year
  Sex: Male

DRUGS (2)
  1. OMEPRAZOLE [Suspect]
     Indication: GASTROOESOPHAGEAL REFLUX DISEASE
     Dosage: 20 MG SEP. DOSAGES / INTERVAL: 1 IN 1 DAY; 20 MG SEP. DOSAGES / INTERVAL: 2 IN 1 DAY
     Dates: end: 20040101
  2. OMEPRAZOLE [Suspect]
     Indication: GASTROOESOPHAGEAL REFLUX DISEASE
     Dosage: 20 MG SEP. DOSAGES / INTERVAL: 1 IN 1 DAY; 20 MG SEP. DOSAGES / INTERVAL: 2 IN 1 DAY
     Dates: start: 20040101

REACTIONS (12)
  - BLOOD CALCIUM INCREASED [None]
  - CARCINOEMBRYONIC ANTIGEN INCREASED [None]
  - CONSTIPATION [None]
  - GASTRINOMA MALIGNANT [None]
  - GASTROINTESTINAL SOUNDS ABNORMAL [None]
  - INTESTINAL OBSTRUCTION [None]
  - METASTASES TO LIVER [None]
  - NEUROENDOCRINE TUMOUR [None]
  - OESOPHAGITIS [None]
  - PYREXIA [None]
  - RETCHING [None]
  - WHITE BLOOD CELL COUNT INCREASED [None]
